FAERS Safety Report 6581961-1 (Version None)
Quarter: 2010Q1

REPORT INFORMATION
  Report Type: 
  Country: None (occurrence: None)
  Receive Date: 20100215
  Receipt Date: 20100203
  Transmission Date: 20100710
  Serious: Yes (Hospitalization)
  Sender: FDA-Public Use
  Company Number: KR-ELI_LILLY_AND_COMPANY-KR200910006087

PATIENT
  Age: 47 Year
  Sex: Male

DRUGS (1)
  1. HUMALOG MIX 75/25 [Suspect]
     Indication: DIABETES MELLITUS
     Dosage: 60 U, EACH MORNING
     Route: 065
     Dates: start: 20090901

REACTIONS (4)
  - CHEST DISCOMFORT [None]
  - LUNG DISORDER [None]
  - PALPITATIONS [None]
  - VASOCONSTRICTION [None]
